FAERS Safety Report 8048832-5 (Version None)
Quarter: 2012Q1

REPORT INFORMATION
  Report Type: 
  Country: None (occurrence: None)
  Receive Date: 20120117
  Receipt Date: 20120103
  Transmission Date: 20120608
  Serious: Yes (Other)
  Sender: FDA-Public Use
  Company Number: GB-UCBSA-044755

PATIENT
  Age: 65 Year
  Sex: Male
  Weight: 95 kg

DRUGS (4)
  1. KEPPRA [Suspect]
     Route: 048
     Dates: start: 20100222
  2. KEPPRA [Suspect]
     Indication: EPILEPSY
     Route: 048
     Dates: start: 20100222
  3. KEPPRA [Suspect]
     Dosage: 500 MG
     Dates: start: 20030101, end: 20080101
  4. KEPPRA [Suspect]
     Dosage: 500 MG
     Dates: start: 20030101, end: 20080101

REACTIONS (11)
  - PERSONALITY DISORDER [None]
  - AMNESIA [None]
  - UMBILICAL HERNIA [None]
  - ABDOMINAL PAIN UPPER [None]
  - MOOD SWINGS [None]
  - AFFECT LABILITY [None]
  - TEARFULNESS [None]
  - LIBIDO DECREASED [None]
  - DIZZINESS [None]
  - FEELING ABNORMAL [None]
  - FUNGAL INFECTION [None]
